FAERS Safety Report 16833196 (Version 1)
Quarter: 2019Q4

REPORT INFORMATION
  Report Type: Spontaneous
  Country: US (occurrence: US)
  Receive Date: 20190920
  Receipt Date: 20190920
  Transmission Date: 20200122
  Serious: Yes (Hospitalization)
  Sender: FDA-Public Use
  Company Number: None

PATIENT
  Age: 59 Year
  Sex: Female

DRUGS (13)
  1. CRUSH VIT [Concomitant]
  2. MAGNESIUM [Concomitant]
     Active Substance: MAGNESIUM
  3. MULTIVITAMIN [Concomitant]
     Active Substance: VITAMINS
  4. PERCOCET [Concomitant]
     Active Substance: ACETAMINOPHEN\OXYCODONE HYDROCHLORIDE
  5. HUMIRA [Suspect]
     Active Substance: ADALIMUMAB
     Indication: COLITIS ULCERATIVE
     Dosage: ?          OTHER FREQUENCY:QOWK;?
     Route: 058
  6. METOPROLOL TARTRATE. [Concomitant]
     Active Substance: METOPROLOL TARTRATE
  7. K-TAB [Concomitant]
     Active Substance: POTASSIUM CHLORIDE
  8. NEURONTIN [Concomitant]
     Active Substance: GABAPENTIN
  9. FOSAMAX [Concomitant]
     Active Substance: ALENDRONATE SODIUM
  10. SULFAZINE [Concomitant]
     Active Substance: SULFASALAZINE
  11. PREDNISONE. [Concomitant]
     Active Substance: PREDNISONE
  12. AZATHIOPRINE. [Concomitant]
     Active Substance: AZATHIOPRINE
  13. SAVAYSA [Concomitant]
     Active Substance: EDOXABAN TOSYLATE

REACTIONS (2)
  - Therapy cessation [None]
  - Hip arthroplasty [None]

NARRATIVE: CASE EVENT DATE: 20190905
